FAERS Safety Report 9607289 (Version 1)
Quarter: 2013Q4

REPORT INFORMATION
  Report Type: Spontaneous
  Country: US (occurrence: US)
  Receive Date: 20131009
  Receipt Date: 20131009
  Transmission Date: 20140711
  Serious: Yes (Hospitalization, Other)
  Sender: FDA-Public Use
  Company Number: US-ROCHE-1283885

PATIENT
  Age: 57 Year
  Sex: Male
  Weight: 89.39 kg

DRUGS (7)
  1. AVASTIN [Suspect]
     Indication: PRODUCT USED FOR UNKNOWN INDICATION
     Route: 042
     Dates: start: 20121024, end: 20130403
  2. XGEVA [Suspect]
     Indication: PRODUCT USED FOR UNKNOWN INDICATION
     Route: 058
     Dates: start: 20121026, end: 20130123
  3. HERCEPTIN [Concomitant]
     Route: 065
     Dates: start: 20130417
  4. IRINOTECAN [Concomitant]
     Route: 065
     Dates: start: 20121026
  5. 5-FU [Concomitant]
     Route: 065
     Dates: start: 20121026
  6. LEUCOVORIN [Concomitant]
     Route: 065
     Dates: start: 20121026
  7. SIMVASTATIN [Concomitant]

REACTIONS (3)
  - Osteonecrosis of jaw [Recovering/Resolving]
  - Oesophageal carcinoma [Unknown]
  - Metastasis [Unknown]
